FAERS Safety Report 15773256 (Version 2)
Quarter: 2020Q1

REPORT INFORMATION
  Report Type: Spontaneous
  Country: US (occurrence: US)
  Receive Date: 20181228
  Receipt Date: 20200325
  Transmission Date: 20200409
  Serious: Yes (Hospitalization)
  Sender: FDA-Public Use
  Company Number: US-VERASTEM-2018-00082

PATIENT

DRUGS (1)
  1. COPIKTRA [Suspect]
     Active Substance: DUVELISIB
     Indication: CHRONIC LYMPHOCYTIC LEUKAEMIA
     Dosage: 25 MG, BID
     Route: 048
     Dates: start: 20181023

REACTIONS (5)
  - Pain in extremity [Unknown]
  - Musculoskeletal pain [Unknown]
  - Neck pain [Unknown]
  - Pneumonia [Unknown]
  - Back pain [Unknown]

NARRATIVE: CASE EVENT DATE: 20181126
